FAERS Safety Report 21798499 (Version 1)
Quarter: 2022Q4

REPORT INFORMATION
  Report Type: Spontaneous
  Country: ES (occurrence: ES)
  Receive Date: 20221230
  Receipt Date: 20221230
  Transmission Date: 20230113
  Serious: Yes (Hospitalization, Other)
  Sender: FDA-Public Use
  Company Number: ES-MLMSERVICE-20221212-3976523-1

PATIENT
  Age: 40 Year
  Sex: Male

DRUGS (2)
  1. AZITHROMYCIN [Suspect]
     Active Substance: AZITHROMYCIN
     Indication: Urethritis chlamydial
     Dosage: 1 GRAM
     Route: 048
  2. CEFTRIAXONE [Suspect]
     Active Substance: CEFTRIAXONE
     Indication: Urethritis chlamydial
     Dosage: 500 MILLIGRAM
     Route: 030

REACTIONS (2)
  - Anxiety [Recovered/Resolved]
  - Delusion of parasitosis [Recovered/Resolved]
